FAERS Safety Report 8614908-4 (Version None)
Quarter: 2012Q3

REPORT INFORMATION
  Report Type: 
  Country: None (occurrence: None)
  Receive Date: 20120815
  Receipt Date: 20120815
  Transmission Date: 20120928
  Serious: Yes (Hospitalization)
  Sender: FDA-Public Use
  Company Number: None

PATIENT
  Sex: Female

DRUGS (1)
  1. XOLAIR 150 MG GENENTECH 300 MG Q 4 WEEKS SQ [Suspect]
     Indication: ASTHMA
     Dosage: 300 MG Q4 WEEKS SQ
     Dates: start: 20110101, end: 20120601

REACTIONS (1)
  - LOSS OF CONSCIOUSNESS [None]
